FAERS Safety Report 11719094 (Version 3)
Quarter: 2016Q1

REPORT INFORMATION
  Report Type: Spontaneous
  Country: US (occurrence: US)
  Receive Date: 20151110
  Receipt Date: 20160128
  Transmission Date: 20160525
  Serious: Yes (Other)
  Sender: FDA-Public Use
  Company Number: US-AMGEN-USASP2015116185

PATIENT
  Age: 68 Year
  Sex: Female

DRUGS (3)
  1. ARANESP [Suspect]
     Active Substance: DARBEPOETIN ALFA
     Indication: NEPHROGENIC ANAEMIA
     Dosage: 100 MUG, Q2WK
     Route: 065
     Dates: start: 2012
  2. CELLCEPT [Concomitant]
     Active Substance: MYCOPHENOLATE MOFETIL\MYCOPHENOLATE MOFETIL HYDROCHLORIDE
     Dosage: 1500 MUG, QD
  3. LOSARTAN                           /01121602/ [Concomitant]
     Active Substance: LOSARTAN

REACTIONS (3)
  - Haemoglobin decreased [Unknown]
  - Diabetes mellitus [Unknown]
  - No therapeutic response [Unknown]
